FAERS Safety Report 7199680-X (Version None)
Quarter: 2010Q4

REPORT INFORMATION
  Report Type: 
  Country: None (occurrence: None)
  Receive Date: 20101228
  Receipt Date: 20101216
  Transmission Date: 20110411
  Serious: Yes (Hospitalization, Other)
  Sender: FDA-Public Use
  Company Number: US-ELI_LILLY_AND_COMPANY-US201005000918

PATIENT
  Sex: Female

DRUGS (5)
  1. FORTEO [Suspect]
     Indication: OSTEOPOROSIS
     Dosage: 20 UG, DAILY (1/D)
     Dates: start: 20100402
  2. CIPRO [Concomitant]
  3. ASCORBIC ACID [Concomitant]
     Dosage: 1000 MG, 3/D
  4. ESTROGEN [Concomitant]
  5. PREMARIN [Concomitant]
     Route: 067

REACTIONS (8)
  - BLADDER CANCER [None]
  - CYSTOCELE REPAIR [None]
  - HEART RATE INCREASED [None]
  - INJECTION SITE INDURATION [None]
  - NAUSEA [None]
  - RECTOCELE REPAIR [None]
  - TRANSFUSION [None]
  - URINARY TRACT INFECTION [None]
